FAERS Safety Report 7764547-2 (Version None)
Quarter: 2011Q3

REPORT INFORMATION
  Report Type: 
  Country: None (occurrence: None)
  Receive Date: 20110921
  Receipt Date: 20110914
  Transmission Date: 20111222
  Serious: Yes (Death, Hospitalization)
  Sender: FDA-Public Use
  Company Number: DE-PFIZER INC-9721021

PATIENT
  Age: 65 Year
  Sex: Female

DRUGS (4)
  1. TENSIOMIN [Suspect]
     Indication: RENAL HYPERTENSION
     Dosage: UNK
     Route: 048
     Dates: start: 19951019
  2. DOXAZOSIN MESYLATE [Suspect]
     Indication: RENAL HYPERTENSION
     Dosage: UNK
     Route: 048
     Dates: start: 19951019
  3. TRIMIPRAMINE MALEATE [Suspect]
     Indication: DEPRESSION
     Dosage: 25 MG, 1X/DAY
     Route: 048
     Dates: start: 19950928
  4. FUROSEMIDE [Suspect]
     Indication: RENAL FAILURE
     Dosage: 500 MG, 1X/DAY
     Route: 048
     Dates: start: 19951005

REACTIONS (9)
  - CARDIAC FAILURE [None]
  - BLOOD CREATININE INCREASED [None]
  - STEVENS-JOHNSON SYNDROME [None]
  - EPIDERMOLYSIS [None]
  - BLOOD UREA DECREASED [None]
  - GENITAL LESION [None]
  - LYMPHOPENIA [None]
  - LEUKOCYTOSIS [None]
  - CONJUNCTIVITIS [None]
